FAERS Safety Report 24592549 (Version 1)
Quarter: 2024Q4

REPORT INFORMATION
  Report Type: Spontaneous
  Country: CN (occurrence: CN)
  Receive Date: 20241108
  Receipt Date: 20241108
  Transmission Date: 20250114
  Serious: Yes (Hospitalization, Other)
  Sender: NOVITIUM PHARMA
  Company Number: CN-NOVITIUMPHARMA-2024CNNVP02488

PATIENT
  Age: 71 Year
  Sex: Female

DRUGS (9)
  1. PREDNISONE [Suspect]
     Active Substance: PREDNISONE
     Indication: Diffuse large B-cell lymphoma stage IV
     Dates: start: 202102
  2. RITUXIMAB [Concomitant]
     Active Substance: RITUXIMAB
     Indication: Diffuse large B-cell lymphoma stage IV
     Dates: start: 202102
  3. RITUXIMAB [Concomitant]
     Active Substance: RITUXIMAB
     Dates: start: 20210623
  4. CYCLOPHOSPHAMIDE [Concomitant]
     Active Substance: CYCLOPHOSPHAMIDE
     Indication: Diffuse large B-cell lymphoma stage IV
     Dates: start: 202102
  5. DOXORUBICIN [Concomitant]
     Active Substance: DOXORUBICIN
     Indication: Diffuse large B-cell lymphoma stage IV
     Dates: start: 202102
  6. VINCRISTINE [Concomitant]
     Active Substance: VINCRISTINE
     Indication: Diffuse large B-cell lymphoma stage IV
     Dates: start: 202102
  7. LENALIDOMIDE [Concomitant]
     Active Substance: LENALIDOMIDE
     Indication: Diffuse large B-cell lymphoma stage IV
     Dates: start: 20210623
  8. ZANUBRUTINIB [Concomitant]
     Active Substance: ZANUBRUTINIB
     Indication: Diffuse large B-cell lymphoma stage IV
     Dates: start: 20210623
  9. SELINEXOR [Concomitant]
     Active Substance: SELINEXOR
     Indication: Diffuse large B-cell lymphoma stage IV
     Dates: start: 202108

REACTIONS (2)
  - Myelosuppression [Unknown]
  - Drug ineffective [Unknown]
